FAERS Safety Report 25285726 (Version 1)
Quarter: 2025Q2

REPORT INFORMATION
  Report Type: Spontaneous
  Country: CA (occurrence: CA)
  Receive Date: 20250509
  Receipt Date: 20250509
  Transmission Date: 20250717
  Serious: Yes (Hospitalization, Other)
  Sender: CELLTRION
  Company Number: CA-PFIZER INC-202500057484

PATIENT

DRUGS (5)
  1. INFLECTRA [Suspect]
     Active Substance: INFLIXIMAB-DYYB
     Indication: Colitis ulcerative
     Route: 042
     Dates: start: 20250201, end: 20250201
  2. BUDESONIDE [Concomitant]
     Active Substance: BUDESONIDE
  3. ISONIAZID [Concomitant]
     Active Substance: ISONIAZID
     Indication: Tuberculosis
     Route: 065
     Dates: start: 20210304
  4. PREDNISONE [Concomitant]
     Active Substance: PREDNISONE
  5. PYRIDOXINE [Concomitant]
     Active Substance: PYRIDOXINE
     Indication: Tuberculosis
     Route: 065
     Dates: start: 20210304

REACTIONS (3)
  - Herpes zoster [Unknown]
  - Bacteraemia [Unknown]
  - Immunosuppression [Unknown]

NARRATIVE: CASE EVENT DATE: 20250301
